FAERS Safety Report 14460630 (Version 1)
Quarter: 2018Q1

REPORT INFORMATION
  Report Type: Spontaneous
  Country: DE (occurrence: DE)
  Receive Date: 20180130
  Receipt Date: 20180130
  Transmission Date: 20180509
  Serious: Yes (Hospitalization)
  Sender: FDA-Public Use
  Company Number: DE-TAKEDA-2018TUS002433

PATIENT
  Age: 74 Year
  Sex: Male

DRUGS (9)
  1. ADENURIC [Suspect]
     Active Substance: FEBUXOSTAT
     Indication: GOUT
     Dosage: 80 MG, QD
     Route: 048
     Dates: end: 20180104
  2. MUCOFALK                           /01328803/ [Concomitant]
     Indication: FUNCTIONAL GASTROINTESTINAL DISORDER
     Dosage: UNK
  3. VERAPAMIL 1 A PHARM [Concomitant]
     Indication: HYPERTENSION
  4. MARCUMAR [Concomitant]
     Active Substance: PHENPROCOUMON
     Indication: THROMBOSIS PROPHYLAXIS
     Dosage: 3 MG, UNK
  5. NITROLINGUAL [Concomitant]
     Active Substance: NITROGLYCERIN
     Indication: ANGINA PECTORIS
     Dosage: 0.4 MG, UNK
     Route: 050
  6. VERAPAMIL 1 A PHARM [Concomitant]
     Indication: ARRHYTHMIA
     Dosage: 240 MG, QD
  7. VALSARTAN PLUS [Concomitant]
     Indication: HYPERTENSION
     Dosage: 320/12.5 MG, QD
  8. SIMVASTATIN. [Concomitant]
     Active Substance: SIMVASTATIN
     Indication: HYPERLIPIDAEMIA
     Dosage: 40 MG, QD
  9. NOVAMINSULFON LICHTENSTEIN [Concomitant]
     Active Substance: METAMIZOLE SODIUM
     Indication: ABDOMINAL PAIN
     Dosage: 500 MG, UNK

REACTIONS (4)
  - Skin disorder [Unknown]
  - Ureterolithiasis [Unknown]
  - Nausea [Unknown]
  - Renal disorder [Unknown]

NARRATIVE: CASE EVENT DATE: 20180104
